FAERS Safety Report 4746607-3 (Version None)
Quarter: 2005Q3

REPORT INFORMATION
  Report Type: 
  Country: None (occurrence: None)
  Receive Date: 20050815
  Receipt Date: 20050802
  Transmission Date: 20060218
  Serious: Yes (Other)
  Sender: FDA-Public Use
  Company Number: 2005110328

PATIENT
  Sex: Male
  Weight: 108.8633 kg

DRUGS (10)
  1. VIAGRA [Suspect]
     Indication: ERECTILE DYSFUNCTION
     Dosage: (100 MG, PRN INTERVAL:  PRN)
  2. CATAPRES [Suspect]
     Indication: HYPERTENSION
  3. CIALIS [Suspect]
     Indication: ERECTILE DYSFUNCTION
  4. LOTREL (AMLODIPINE, BENZAPERIL HYDROCHLORIDE) [Concomitant]
  5. FUROSEMIDE [Concomitant]
  6. SIMVASTATIN [Concomitant]
  7. ACETYLSALICYLIC ACID SRT [Concomitant]
  8. OXYBUTYNIN CHLORIDE [Concomitant]
  9. TYLENOL [Concomitant]
  10. MULTIVITAMIN [Concomitant]

REACTIONS (4)
  - AORTIC DISSECTION [None]
  - BLOOD TESTOSTERONE DECREASED [None]
  - DRUG INEFFECTIVE [None]
  - DRY MOUTH [None]
